FAERS Safety Report 8906990 (Version 3)
Quarter: 2013Q1

REPORT INFORMATION
  Report Type: Spontaneous
  Country: US (occurrence: US)
  Receive Date: 20121114
  Receipt Date: 20130123
  Transmission Date: 20140127
  Serious: Yes (Hospitalization)
  Sender: FDA-Public Use
  Company Number: US-BAYER-2012-116087

PATIENT
  Age: 50 Year
  Sex: Female
  Weight: 73.33 kg

DRUGS (2)
  1. YAZ [Suspect]
     Dosage: UNK
     Dates: start: 2001, end: 20100911
  2. YAZ [Suspect]
     Dosage: UNK
     Dates: start: 1998, end: 2010

REACTIONS (2)
  - Pulmonary embolism [Recovered/Resolved]
  - Injury [Recovered/Resolved]
